FAERS Safety Report 24616032 (Version 1)
Quarter: 2024Q4

REPORT INFORMATION
  Report Type: Report from Study
  Country: CA (occurrence: CA)
  Receive Date: 20241113
  Receipt Date: 20241113
  Transmission Date: 20250115
  Serious: Yes (Hospitalization)
  Sender: ABBVIE
  Company Number: CA-ABBVIE-5995882

PATIENT
  Age: 46 Year
  Sex: Male

DRUGS (2)
  1. SKYRIZI [Suspect]
     Active Substance: RISANKIZUMAB-RZAA
     Indication: Psoriasis
     Route: 058
     Dates: start: 20230926, end: 20240207
  2. SKYRIZI [Suspect]
     Active Substance: RISANKIZUMAB-RZAA
     Route: 058
     Dates: start: 20240829

REACTIONS (5)
  - Clostridium difficile infection [Unknown]
  - Diarrhoea [Unknown]
  - Anxiety [Unknown]
  - Infection [Unknown]
  - Nausea [Unknown]

NARRATIVE: CASE EVENT DATE: 20241001
